FAERS Safety Report 24670732 (Version 1)
Quarter: 2024Q4

REPORT INFORMATION
  Report Type: Spontaneous
  Country: CN (occurrence: CN)
  Receive Date: 20241127
  Receipt Date: 20241127
  Transmission Date: 20250115
  Serious: Yes (Hospitalization, Other)
  Sender: AMERICAN REGENT
  Company Number: CN-AMERICAN REGENT INC-2024004380

PATIENT
  Age: 52 Year
  Sex: Male
  Weight: 61.9 kg

DRUGS (1)
  1. VENOFER [Suspect]
     Active Substance: IRON SUCROSE
     Indication: Nephrogenic anaemia
     Dosage: 0.9% SODIUM CHLORIDE 100 ML + VENOFER INJECTION 100 MG (100 MG, 1 IN 1 D)
     Dates: start: 20241111, end: 20241111

REACTIONS (6)
  - Cardiac failure [Not Recovered/Not Resolved]
  - Atrial fibrillation [Unknown]
  - Hypersensitivity [Recovered/Resolved]
  - Agitation [Unknown]
  - Dysphoria [Unknown]
  - Abdominal tenderness [Unknown]

NARRATIVE: CASE EVENT DATE: 20241111
